FAERS Safety Report 4724105-0 (Version None)
Quarter: 2005Q3

REPORT INFORMATION
  Report Type: 
  Country: None (occurrence: None)
  Receive Date: 20050722
  Receipt Date: 20050616
  Transmission Date: 20060218
  Serious: Yes (Hospitalization)
  Sender: FDA-Public Use
  Company Number: 2005P1000037

PATIENT
  Age: 44 Year
  Sex: Female

DRUGS (1)
  1. NICARDIPINE HCL [Suspect]
     Indication: PROCEDURAL HYPERTENSION
     Dosage: 50 MG; IV
     Route: 042
     Dates: start: 20050318, end: 20050323

REACTIONS (5)
  - INFUSION SITE PHLEBITIS [None]
  - INFUSION SITE ULCER [None]
  - INJECTION SITE ABSCESS [None]
  - VASCULITIS [None]
  - WRONG TECHNIQUE IN DRUG USAGE PROCESS [None]
